FAERS Safety Report 7730748-2 (Version None)
Quarter: 2011Q3

REPORT INFORMATION
  Report Type: 
  Country: None (occurrence: None)
  Receive Date: 20110906
  Receipt Date: 20110831
  Transmission Date: 20111222
  Serious: Yes (Life-Threatening, Hospitalization)
  Sender: FDA-Public Use
  Company Number: GB-GLAXOSMITHKLINE-B0743422A

PATIENT
  Age: 59 Year
  Sex: Female
  Weight: 58.5 kg

DRUGS (7)
  1. CLOZAPINE [Suspect]
     Route: 048
     Dates: start: 20110610, end: 20110627
  2. ALBUTEROL [Concomitant]
     Dosage: 200MCG PER DAY
     Route: 055
     Dates: start: 20110701
  3. CLOTRIMAZOLE [Concomitant]
     Indication: FUNGAL INFECTION
     Route: 061
     Dates: start: 20110601
  4. NICOTINE [Concomitant]
     Dosage: 15MG PER DAY
     Route: 061
     Dates: start: 20110701
  5. RANITIDINE [Suspect]
     Indication: DYSPEPSIA
     Dosage: 300MG PER DAY
     Route: 048
     Dates: start: 20110201
  6. CLOZAPINE [Suspect]
     Route: 048
     Dates: start: 20110707, end: 20110809
  7. SYMBICORT [Concomitant]
     Route: 055
     Dates: start: 20110701

REACTIONS (3)
  - AGRANULOCYTOSIS [None]
  - NEUTROPENIC SEPSIS [None]
  - LEUKOPENIA [None]
